FAERS Safety Report 5672418-0 (Version None)
Quarter: 2008Q1

REPORT INFORMATION
  Report Type: 
  Country: None (occurrence: None)
  Receive Date: 20080318
  Receipt Date: 20080318
  Transmission Date: 20080703
  Serious: Yes (Other)
  Sender: FDA-Public Use
  Company Number: None

PATIENT
  Age: 70 Year
  Sex: Female

DRUGS (1)
  1. RITUXAN [Suspect]
     Indication: CHRONIC LYMPHOCYTIC LEUKAEMIA
     Dosage: 935 MG ONCE  IV
     Route: 042
     Dates: start: 20080212, end: 20080212

REACTIONS (6)
  - DYSPHAGIA [None]
  - EAR DISORDER [None]
  - ERYTHEMA [None]
  - PRURITUS [None]
  - RESPIRATORY DISORDER [None]
  - SINUSITIS [None]
